FAERS Safety Report 8721416 (Version 2)
Quarter: 2012Q4

REPORT INFORMATION
  Report Type: Report from Study
  Country: IT (occurrence: IT)
  Receive Date: 20120813
  Receipt Date: 20120905
  Transmission Date: 20130627
  Serious: Yes (Hospitalization)
  Sender: FDA-Public Use
  Company Number: IT-TEVA-353147USA

PATIENT
  Age: 74 Year
  Sex: Male

DRUGS (12)
  1. TREANDA [Suspect]
     Indication: MANTLE CELL LYMPHOMA
     Dosage: unknown
     Route: 042
     Dates: start: 20120528
  2. TREANDA [Suspect]
     Dosage: 70 mg/m2 cyclic
     Route: 042
     Dates: start: 20120626
  3. RITUXIMAB [Suspect]
     Indication: MANTLE CELL LYMPHOMA
     Dosage: 375 mg/m2, Cyclic
     Route: 042
     Dates: start: 20120625
  4. CYTARABINE [Suspect]
     Indication: MANTLE CELL LYMPHOMA
     Dosage: 500 mg/m2, Cyclic
     Route: 042
     Dates: start: 20120625
  5. SULFAMETHOXAZOLE W/TRIMETHOPRIM [Concomitant]
     Dates: start: 20120611
  6. TETRACOSACTIDE [Concomitant]
     Dates: start: 20120628
  7. PEGFILGASTRIM [Concomitant]
     Dates: start: 20120629
  8. DARBEPOETIN ALFA [Concomitant]
     Dates: start: 20120702
  9. AMOXICILLIN CLAVULANIC ACID [Concomitant]
     Dates: start: 20120703
  10. FLUCONAZOLE [Concomitant]
     Dates: start: 20120703
  11. ALLOPURINOL [Concomitant]
     Dates: start: 20120528
  12. OMEPRAZOLE [Concomitant]

REACTIONS (2)
  - Epistaxis [Recovered/Resolved]
  - Pyrexia [Recovered/Resolved]
